FAERS Safety Report 10476877 (Version 12)
Quarter: 2017Q2

REPORT INFORMATION
  Report Type: Report from Study
  Country: CA (occurrence: CA)
  Receive Date: 20140926
  Receipt Date: 20170613
  Transmission Date: 20170829
  Serious: Yes (Other)
  Sender: FDA-Public Use
  Company Number: CA-ROCHE-1458973

PATIENT
  Age: 37 Year
  Sex: Female
  Weight: 68.2 kg

DRUGS (14)
  1. EURO D [Concomitant]
     Route: 065
     Dates: start: 2015
  2. DIPHENHYDRAMINE HCL [Concomitant]
     Active Substance: DIPHENHYDRAMINE HYDROCHLORIDE
     Indication: PREMEDICATION
     Route: 048
     Dates: start: 20140904
  3. ACETAMINOPHEN. [Concomitant]
     Active Substance: ACETAMINOPHEN
     Indication: PREMEDICATION
     Route: 048
     Dates: start: 20140904
  4. FOLIC ACID. [Concomitant]
     Active Substance: FOLIC ACID
  5. SULFASALAZINE. [Concomitant]
     Active Substance: SULFASALAZINE
  6. RISEDRONATE [Concomitant]
     Active Substance: RISEDRONATE SODIUM
     Route: 065
     Dates: start: 2015
  7. METHYLPREDNISOLONE. [Concomitant]
     Active Substance: METHYLPREDNISOLONE
     Indication: PREMEDICATION
     Route: 042
     Dates: start: 20140904
  8. RITUXAN [Suspect]
     Active Substance: RITUXIMAB
     Indication: RHEUMATOID ARTHRITIS
     Dosage: RECENT DOSE ON 19/SEP/2014 AND 20/MAR/2015, 20/OCT/2015, 05/JUN/2017
     Route: 042
     Dates: start: 20140904
  9. PANTOLOC [Concomitant]
     Active Substance: PANTOPRAZOLE SODIUM
  10. METHOTREXATE. [Concomitant]
     Active Substance: METHOTREXATE
  11. SYNTHROID [Concomitant]
     Active Substance: LEVOTHYROXINE SODIUM
  12. PREDNISONE. [Concomitant]
     Active Substance: PREDNISONE
     Dosage: TITRATING BY 5 MG
     Route: 065
  13. DICLOFENAC [Concomitant]
     Active Substance: DICLOFENAC
     Route: 065
     Dates: start: 2015
  14. PREDNISONE. [Concomitant]
     Active Substance: PREDNISONE
     Route: 065

REACTIONS (14)
  - Ear pruritus [Recovered/Resolved]
  - Headache [Unknown]
  - Hypothyroidism [Unknown]
  - Hypotension [Unknown]
  - Sinusitis [Recovered/Resolved]
  - Erythema [Unknown]
  - Hepatic pain [Recovering/Resolving]
  - Dizziness [Unknown]
  - Infusion related reaction [Unknown]
  - Heart rate decreased [Unknown]
  - Vision blurred [Unknown]
  - Pharyngeal paraesthesia [Recovered/Resolved]
  - Paraesthesia ear [Recovered/Resolved]
  - Blood pressure systolic increased [Unknown]

NARRATIVE: CASE EVENT DATE: 20140904
